FAERS Safety Report 5901780-6 (Version None)
Quarter: 2008Q3

REPORT INFORMATION
  Report Type: 
  Country: None (occurrence: None)
  Receive Date: 20080926
  Receipt Date: 20080926
  Transmission Date: 20090109
  Serious: Yes (Disabling)
  Sender: FDA-Public Use
  Company Number: None

PATIENT
  Sex: Female
  Weight: 44.6 kg

DRUGS (2)
  1. HURRICAINE ORAL ANESTHETIC SPRAY 20% BENZOCAINE BEUTLICH PHARMACEUTICA [Suspect]
     Indication: ANAESTHESIA
     Dosage: 20% PO
     Route: 048
     Dates: start: 20080912, end: 20080912
  2. HURRICAINE ORAL ANESTHETIC SPRAY 20% BENZOCAINE BEUTLICH PHARMACEUTICA [Suspect]
     Indication: ENDOSCOPY
     Dosage: 20% PO
     Route: 048
     Dates: start: 20080912, end: 20080912

REACTIONS (1)
  - OXYGEN SATURATION DECREASED [None]
